FAERS Safety Report 5753674-7 (Version None)
Quarter: 2008Q2

REPORT INFORMATION
  Report Type: 
  Country: None (occurrence: None)
  Receive Date: 20080527
  Receipt Date: 20080516
  Transmission Date: 20081010
  Serious: Yes (Hospitalization)
  Sender: FDA-Public Use
  Company Number: 163-20785-08040159

PATIENT
  Age: 88 Year
  Sex: Female

DRUGS (3)
  1. THALOMID [Suspect]
     Indication: MULTIPLE MYELOMA
     Dosage: 50 MG, 1 IN 1 D, ORAL; 100 MG, 2 IN 1 D, ORAL
     Route: 048
     Dates: start: 20021022, end: 20030901
  2. THALOMID [Suspect]
     Indication: MULTIPLE MYELOMA
     Dosage: 50 MG, 1 IN 1 D, ORAL; 100 MG, 2 IN 1 D, ORAL
     Route: 048
     Dates: start: 20031006, end: 20070701
  3. THALOMID [Suspect]
     Indication: MULTIPLE MYELOMA
     Dosage: 50 MG, 1 IN 1 D, ORAL; 100 MG, 2 IN 1 D, ORAL
     Route: 048
     Dates: start: 20071218

REACTIONS (4)
  - FALL [None]
  - MULTIPLE FRACTURES [None]
  - PNEUMONIA [None]
  - SYNCOPE [None]
